FAERS Safety Report 12929723 (Version 1)
Quarter: 2016Q4

REPORT INFORMATION
  Report Type: Spontaneous
  Country: US (occurrence: US)
  Receive Date: 20161110
  Receipt Date: 20161110
  Transmission Date: 20170207
  Serious: Yes (Other)
  Sender: FDA-Public Use
  Company Number: US-ELI_LILLY_AND_COMPANY-US201608003675

PATIENT
  Sex: Female
  Weight: 141.95 kg

DRUGS (1)
  1. CYMBALTA [Suspect]
     Active Substance: DULOXETINE HYDROCHLORIDE
     Indication: DEPRESSION
     Dosage: 60 MG, QD
     Route: 065
     Dates: start: 20090210

REACTIONS (25)
  - Fatigue [Unknown]
  - Irritability [Unknown]
  - Anger [Unknown]
  - Drug withdrawal syndrome [Unknown]
  - Hyperhidrosis [Unknown]
  - Tremor [Unknown]
  - Paraesthesia [Unknown]
  - Confusional state [Unknown]
  - Nausea [Unknown]
  - Dysphoria [Unknown]
  - Vertigo [Unknown]
  - Dizziness [Unknown]
  - Insomnia [Not Recovered/Not Resolved]
  - Suicidal ideation [Unknown]
  - Vomiting [Unknown]
  - Headache [Not Recovered/Not Resolved]
  - Lethargy [Unknown]
  - Asthenia [Unknown]
  - Weight decreased [Unknown]
  - Contusion [Unknown]
  - Agitation [Unknown]
  - Anxiety [Not Recovered/Not Resolved]
  - Sensory disturbance [Unknown]
  - Hostility [Unknown]
  - Nightmare [Unknown]

NARRATIVE: CASE EVENT DATE: 2011
